FAERS Safety Report 13640467 (Version 1)
Quarter: 2017Q2

REPORT INFORMATION
  Report Type: Report from Study
  Country: GB (occurrence: GB)
  Receive Date: 20170611
  Receipt Date: 20170611
  Transmission Date: 20170830
  Serious: Yes (Hospitalization)
  Sender: FDA-Public Use
  Company Number: GB-AMGEN-GBRSL2017085973

PATIENT
  Age: 83 Year
  Sex: Female

DRUGS (1)
  1. ARANESP [Suspect]
     Active Substance: DARBEPOETIN ALFA
     Indication: PRODUCT USED FOR UNKNOWN INDICATION
     Dosage: 30 MUG, QWK
     Route: 065

REACTIONS (3)
  - Rib fracture [Unknown]
  - Unevaluable event [Unknown]
  - Fall [Unknown]

NARRATIVE: CASE EVENT DATE: 201704
